FAERS Safety Report 6617065-9 (Version None)
Quarter: 2010Q1

REPORT INFORMATION
  Report Type: 
  Country: None (occurrence: None)
  Receive Date: 20100307
  Receipt Date: 20100222
  Transmission Date: 20100710
  Serious: Yes (Hospitalization, Other)
  Sender: FDA-Public Use
  Company Number: GR-ELI_LILLY_AND_COMPANY-GR201002007292

PATIENT
  Age: 22 Year
  Sex: Male

DRUGS (1)
  1. OLANZAPINE [Suspect]
     Indication: IRRITABILITY
     Dosage: 5 MG, 2/D
     Route: 065

REACTIONS (2)
  - BLOOD UREA INCREASED [None]
  - NEUROLEPTIC MALIGNANT SYNDROME [None]
